FAERS Safety Report 4330044-X (Version None)
Quarter: 2004Q1

REPORT INFORMATION
  Report Type: 
  Country: None (occurrence: None)
  Receive Date: 20040329
  Receipt Date: 20040114
  Transmission Date: 20041129
  Serious: No
  Sender: FDA-Public Use
  Company Number: 03P-163-0234987-00

PATIENT
  Age: 76 Year
  Sex: Female
  Weight: 58.0604 kg

DRUGS (4)
  1. HUMIRA [Suspect]
     Indication: RHEUMATOID ARTHRITIS
     Dosage: 40 MG, 1 IN 2 WK; SUBCUTANEOUS
     Route: 058
     Dates: start: 20030825
  2. CELECOXIB [Concomitant]
  3. PREDNISONE [Concomitant]
  4. CALCIUM WITH VITAMIN D [Concomitant]

REACTIONS (3)
  - HEADACHE [None]
  - INJECTION SITE RASH [None]
  - WEIGHT INCREASED [None]
